FAERS Safety Report 6958561-4 (Version None)
Quarter: 2010Q3

REPORT INFORMATION
  Report Type: 
  Country: None (occurrence: None)
  Receive Date: 20100831
  Receipt Date: 20100823
  Transmission Date: 20110219
  Serious: Yes (Hospitalization)
  Sender: FDA-Public Use
  Company Number: US-US-EMD SERONO, INC.-230761J10USA

PATIENT
  Sex: Female
  Weight: 48 kg

DRUGS (8)
  1. REBIF [Suspect]
     Indication: MULTIPLE SCLEROSIS
     Route: 058
     Dates: start: 20091223
  2. REBIF [Suspect]
     Route: 058
     Dates: end: 20100122
  3. VIOKASE 16 [Concomitant]
     Indication: PANCREATITIS
     Route: 065
     Dates: start: 20060101
  4. INHALER [Concomitant]
     Indication: ASTHMA
     Route: 055
  5. LACTULOSE [Concomitant]
     Indication: DIARRHOEA
     Route: 065
  6. LACTULOSE [Concomitant]
     Indication: CONSTIPATION
  7. HYDROCODONE [Concomitant]
     Indication: ABDOMINAL PAIN
     Route: 065
  8. MUSCLE RELAXANT [Concomitant]
     Indication: MUSCLE SPASMS
     Route: 065

REACTIONS (3)
  - ABDOMINAL RIGIDITY [None]
  - LIVER FUNCTION TEST ABNORMAL [None]
  - PANCREATITIS ACUTE [None]
